FAERS Safety Report 20221253 (Version 1)
Quarter: 2021Q4

REPORT INFORMATION
  Report Type: Spontaneous
  Country: DE (occurrence: DE)
  Receive Date: 20211223
  Receipt Date: 20211223
  Transmission Date: 20220303
  Serious: Yes (Hospitalization)
  Sender: FDA-Public Use
  Company Number: DE-ADRED-07609-01

PATIENT
  Age: 78 Year
  Sex: Male
  Weight: 68 kg

DRUGS (6)
  1. ASPIRIN [Suspect]
     Active Substance: ASPIRIN
     Dosage: 100 MILLIGRAM DAILY;  0-1-0-0, ACETYLSALICYLSAURE
     Route: 048
  2. ACYCLOVIR [Suspect]
     Active Substance: ACYCLOVIR
     Dosage: 800 MG, DISCONTINUED SINCE 23032021
     Route: 048
  3. PROPRANOLOL [Concomitant]
     Active Substance: PROPRANOLOL HYDROCHLORIDE
     Dosage: 1 DOSAGE FORMS DAILY; 40 MG, 0.5-0-0.5-0,
     Route: 048
  4. METAMIZOL [Concomitant]
     Active Substance: METAMIZOLE SODIUM
     Dosage: 1500 MILLIGRAM DAILY; 1-1-0-1, DROPS
     Route: 048
  5. ATORVASTATIN [Concomitant]
     Active Substance: ATORVASTATIN
     Dosage: 20 MILLIGRAM DAILY;  0-0-1-0
     Route: 048
  6. Beclometason/Formoterol [Concomitant]
     Dosage: 4 DOSAGE FORMS DAILY; 100|6 UG, 2-0-2-0,
     Route: 055

REACTIONS (5)
  - Nausea [Unknown]
  - Pain [Unknown]
  - Pollakiuria [Unknown]
  - Renal impairment [Unknown]
  - Haematuria [Unknown]
